FAERS Safety Report 6454843-3 (Version None)
Quarter: 2009Q4

REPORT INFORMATION
  Report Type: 
  Country: None (occurrence: None)
  Receive Date: 20091124
  Receipt Date: 20091116
  Transmission Date: 20100525
  Serious: Yes (Hospitalization, Disabling, Other)
  Sender: FDA-Public Use
  Company Number: BR-PFIZER INC-2009288123

PATIENT
  Age: 40 Year
  Sex: Female
  Weight: 55 kg

DRUGS (10)
  1. CELEBRA [Suspect]
     Indication: APHTHOUS STOMATITIS
     Dosage: 200 MG, 2X/DAY (EVERY 12 HOURS)
     Route: 048
     Dates: start: 20091001
  2. CELEBRA [Suspect]
     Indication: MOUTH INJURY
  3. METICORTEN [Concomitant]
     Dosage: UNK
  4. PARACETAMOL [Concomitant]
     Dosage: UNK
  5. TRAMAL [Concomitant]
     Dosage: UNK
  6. DERMACERIUM [Concomitant]
     Dosage: UNK
  7. PRED FORTE [Concomitant]
     Dosage: UNK
  8. BERLISON [Concomitant]
     Dosage: UNK
  9. HEXOMEDINE ^RHODIA^ [Concomitant]
     Dosage: UNK
  10. DERSANI [Suspect]

REACTIONS (4)
  - ARTHRALGIA [None]
  - HYPERSENSITIVITY [None]
  - STEVENS-JOHNSON SYNDROME [None]
  - WEIGHT INCREASED [None]
